FAERS Safety Report 8926337 (Version 1)
Quarter: 2012Q4

REPORT INFORMATION
  Report Type: 
  Country: AR (occurrence: AR)
  Receive Date: 20121126
  Receipt Date: 20121126
  Transmission Date: 20130627
  Serious: Yes (Hospitalization, Other)
  Sender: FDA-Public Use
  Company Number: PHHY2012AR106769

PATIENT
  Sex: Female

DRUGS (2)
  1. RASILEZ D [Suspect]
     Indication: HYPERTENSION
     Dosage: UNK UKN(300/12.5 mg), UNK
     Dates: start: 2012
  2. DIOVAN D [Suspect]
     Dosage: UNK UKN(160/12.5 mg), UNK

REACTIONS (4)
  - Cerebrovascular accident [Recovered/Resolved]
  - Arterial occlusive disease [Unknown]
  - Movement disorder [Unknown]
  - Oral discomfort [Unknown]
